FAERS Safety Report 8990049 (Version 1)
Quarter: 2012Q4

REPORT INFORMATION
  Report Type: 
  Country: GB (occurrence: GB)
  Receive Date: 20121228
  Receipt Date: 20121228
  Transmission Date: 20130627
  Serious: Yes (Other)
  Sender: FDA-Public Use
  Company Number: GB-SANOFI-AVENTIS-2012SA094080

PATIENT
  Age: 70 Year

DRUGS (10)
  1. MULTAQ [Suspect]
     Indication: DRUG USE FOR UNKNOWN INDICATION
     Route: 065
     Dates: start: 20120516
  2. WARFARIN [Concomitant]
  3. OXYBUTYNIN [Concomitant]
  4. OMEPRAZOLE [Concomitant]
  5. DILTIAZEM [Concomitant]
  6. ATORVASTATIN [Concomitant]
  7. LAMOTRIGINE [Concomitant]
     Indication: EPILEPSY
  8. ISOSORBIDE MONONITRATE [Concomitant]
     Route: 065
  9. ADCAL [Concomitant]
     Route: 065
  10. CO-CODAMOL [Concomitant]

REACTIONS (1)
  - Epilepsy [Recovered/Resolved]
